FAERS Safety Report 22272275 (Version 1)
Quarter: 2023Q2

REPORT INFORMATION
  Report Type: Spontaneous
  Country: US (occurrence: US)
  Receive Date: 20230502
  Receipt Date: 20230502
  Transmission Date: 20230721
  Serious: Yes (Hospitalization, Other)
  Sender: FDA-Public Use
  Company Number: US-009507513-2304USA010028

PATIENT
  Age: 57 Year
  Sex: Male

DRUGS (13)
  1. KEYTRUDA [Suspect]
     Active Substance: PEMBROLIZUMAB
     Indication: Renal cancer
     Dosage: UNK UNK, Q3W
     Route: 065
     Dates: start: 20230102
  2. KEYTRUDA [Suspect]
     Active Substance: PEMBROLIZUMAB
     Dosage: UNK, EVERY 6 WEEKS
     Route: 065
     Dates: start: 20230128
  3. CABOMETYX [Suspect]
     Active Substance: CABOZANTINIB S-MALATE
     Indication: Renal cancer
     Dosage: 40 MILLIGRAM, QD
     Route: 065
     Dates: start: 20230102
  4. CABOMETYX [Suspect]
     Active Substance: CABOZANTINIB S-MALATE
     Dosage: 60 MILLIGRAM, QD
     Route: 065
     Dates: start: 20230128, end: 20230304
  5. ALLOPURINOL [Concomitant]
     Active Substance: ALLOPURINOL
  6. CLARITIN [Concomitant]
     Active Substance: LORATADINE
  7. FAMOTIDINE [Concomitant]
     Active Substance: FAMOTIDINE
  8. LOSARTAN [Concomitant]
     Active Substance: LOSARTAN
  9. VITAMINS [Concomitant]
     Active Substance: VITAMINS
  10. PLAVIX [Concomitant]
     Active Substance: CLOPIDOGREL BISULFATE
  11. SPIRONOLACTONE [Concomitant]
     Active Substance: SPIRONOLACTONE
  12. ASPIRIN [Concomitant]
     Active Substance: ASPIRIN
  13. ONDANSETRON [Concomitant]
     Active Substance: ONDANSETRON

REACTIONS (13)
  - Cholecystitis [Not Recovered/Not Resolved]
  - Enterocutaneous fistula [Not Recovered/Not Resolved]
  - Dysuria [Not Recovered/Not Resolved]
  - Blood potassium increased [Not Recovered/Not Resolved]
  - Blood sodium decreased [Not Recovered/Not Resolved]
  - Tongue dry [Unknown]
  - Taste disorder [Unknown]
  - Dry mouth [Unknown]
  - Dry skin [Unknown]
  - Decreased appetite [Unknown]
  - Nausea [Unknown]
  - Diarrhoea [Unknown]
  - Pruritus [Unknown]

NARRATIVE: CASE EVENT DATE: 20230101
